FAERS Safety Report 9596281 (Version 4)
Quarter: 2014Q1

REPORT INFORMATION
  Report Type: Report from Study
  Country: US (occurrence: US)
  Receive Date: 20131004
  Receipt Date: 20140328
  Transmission Date: 20141002
  Serious: Yes (Other)
  Sender: FDA-Public Use
  Company Number: US-ROCHE-1254537

PATIENT
  Age: 53 Year
  Sex: Female

DRUGS (15)
  1. LUCENTIS [Suspect]
     Indication: MACULAR DEGENERATION
     Route: 065
     Dates: start: 20130524
  2. LUCENTIS [Suspect]
     Indication: DIABETIC RETINOPATHY
     Route: 065
     Dates: start: 20130905
  3. LUCENTIS [Suspect]
     Indication: DIABETIC RETINOPATHY
  4. LUCENTIS [Suspect]
     Indication: DIABETIC RETINAL OEDEMA
  5. AVASTIN [Suspect]
     Indication: PRODUCT USED FOR UNKNOWN INDICATION
     Route: 065
     Dates: start: 20110802
  6. LANTUS [Concomitant]
     Dosage: 18 UNITS
     Route: 065
  7. VICODIN [Concomitant]
     Indication: PAIN
     Route: 048
  8. NEURONTIN (UNITED STATES) [Concomitant]
     Route: 048
  9. ASPIRIN [Concomitant]
  10. LASIX [Concomitant]
  11. LIPITOR [Concomitant]
     Route: 048
  12. TRADJENTA [Concomitant]
     Route: 048
  13. ALDACTONE (UNITED STATES) [Concomitant]
     Route: 048
  14. COUMADIN [Concomitant]
     Route: 048
  15. LISINOPRIL [Concomitant]
     Route: 048

REACTIONS (4)
  - Hordeolum [Unknown]
  - Eye pain [Unknown]
  - Visual acuity reduced [Unknown]
  - Nephrolithiasis [Recovered/Resolved]
